FAERS Safety Report 11226318 (Version 5)
Quarter: 2015Q4

REPORT INFORMATION
  Report Type: Spontaneous
  Country: JP (occurrence: JP)
  Receive Date: 20150629
  Receipt Date: 20151223
  Transmission Date: 20160304
  Serious: Yes (Hospitalization, Other)
  Sender: FDA-Public Use
  Company Number: JP-GILEAD-2015-0159877

PATIENT
  Age: 52 Year
  Sex: Male

DRUGS (5)
  1. COPEGUS [Concomitant]
     Active Substance: RIBAVIRIN
     Dosage: 4 DF, QD
     Dates: start: 20150611, end: 20150715
  2. SOVALDI [Suspect]
     Active Substance: SOFOSBUVIR
     Dosage: 400 MG, QD
     Route: 048
     Dates: start: 20150624, end: 20150715
  3. SOVALDI [Suspect]
     Active Substance: SOFOSBUVIR
     Indication: HEPATITIS C
     Dosage: 400 MG, QD
     Route: 048
     Dates: start: 20150611, end: 20150617
  4. SILECE [Concomitant]
     Active Substance: FLUNITRAZEPAM
     Dosage: 10 DF, QD
     Route: 065
     Dates: start: 201506, end: 201506
  5. SILECE [Concomitant]
     Active Substance: FLUNITRAZEPAM
     Dosage: 2 DF, QD
     Route: 065

REACTIONS (4)
  - Liver disorder [Recovering/Resolving]
  - Hepatitis C [Unknown]
  - Malaise [Recovering/Resolving]
  - Drug ineffective [Recovering/Resolving]

NARRATIVE: CASE EVENT DATE: 20150611
